FAERS Safety Report 10736261 (Version 1)
Quarter: 2015Q1

REPORT INFORMATION
  Report Type: Spontaneous
  Country: US (occurrence: None)
  Receive Date: 20150122
  Receipt Date: 20150122
  Transmission Date: 20150721
  Serious: Yes (Death)
  Sender: FDA-Public Use
  Company Number: None

PATIENT
  Age: 58 Year
  Sex: Male
  Weight: 86.3 kg

DRUGS (9)
  1. LEXISCAN [Suspect]
     Active Substance: REGADENOSON
     Indication: CARDIAC STRESS TEST
     Route: 042
  2. OLANZAPINE. [Concomitant]
     Active Substance: OLANZAPINE
  3. CLONIDINE. [Concomitant]
     Active Substance: CLONIDINE
  4. PANTOPRAZOLE [Concomitant]
     Active Substance: PANTOPRAZOLE SODIUM
  5. CHLORPROMAZINE [Concomitant]
     Active Substance: CHLORPROMAZINE
  6. CARDIOLYTE TC99M [Concomitant]
  7. ASA [Concomitant]
     Active Substance: ASPIRIN
  8. TOPROL XL [Concomitant]
     Active Substance: METOPROLOL SUCCINATE
  9. HEPARIN [Concomitant]
     Active Substance: HEPARIN SODIUM

REACTIONS (6)
  - Chest pain [None]
  - Angina unstable [None]
  - Nausea [None]
  - Tachycardia [None]
  - Acute kidney injury [None]
  - Cardio-respiratory arrest [None]

NARRATIVE: CASE EVENT DATE: 20150106
